FAERS Safety Report 24054827 (Version 3)
Quarter: 2024Q3

REPORT INFORMATION
  Report Type: Spontaneous
  Country: CA (occurrence: CA)
  Receive Date: 20240705
  Receipt Date: 20240927
  Transmission Date: 20241017
  Serious: Yes (Hospitalization, Other)
  Sender: PFIZER
  Company Number: CA-PFIZER INC-202400206371

PATIENT
  Age: 81 Year
  Sex: Female

DRUGS (1)
  1. XELJANZ [Suspect]
     Active Substance: TOFACITINIB CITRATE
     Indication: Psoriatic arthropathy
     Dosage: 5 MG, 2X/DAY
     Route: 048
     Dates: start: 20210809, end: 202403

REACTIONS (8)
  - Hepatic infection [Unknown]
  - Cholelithiasis [Unknown]
  - Sepsis [Unknown]
  - Cholecystitis infective [Unknown]
  - Myocardial infarction [Unknown]
  - Productive cough [Not Recovered/Not Resolved]
  - Haematological infection [Unknown]
  - Therapeutic product effect incomplete [Not Recovered/Not Resolved]

NARRATIVE: CASE EVENT DATE: 20231201
